FAERS Safety Report 24942432 (Version 3)
Quarter: 2025Q2

REPORT INFORMATION
  Report Type: Spontaneous
  Country: AU (occurrence: AU)
  Receive Date: 20250207
  Receipt Date: 20250404
  Transmission Date: 20250717
  Serious: Yes (Other)
  Sender: NOVARTIS
  Company Number: AU-002147023-NVSC2025AU019104

PATIENT
  Sex: Female

DRUGS (2)
  1. KISQALI [Suspect]
     Active Substance: RIBOCICLIB
     Indication: Breast cancer metastatic
     Route: 065
     Dates: start: 202410, end: 20250302
  2. KISQALI [Suspect]
     Active Substance: RIBOCICLIB
     Route: 065

REACTIONS (14)
  - Hyperkeratosis [Unknown]
  - Breast cancer metastatic [Unknown]
  - Metastases to lung [Unknown]
  - Malignant neoplasm progression [Unknown]
  - Sunburn [Not Recovered/Not Resolved]
  - Erythema [Unknown]
  - Burning sensation [Unknown]
  - Blood pressure abnormal [Unknown]
  - Rash [Recovered/Resolved]
  - Skin irritation [Unknown]
  - Skin exfoliation [Unknown]
  - Dyspnoea [Unknown]
  - Tremor [Unknown]
  - Pain [Unknown]
